FAERS Safety Report 4979129-5 (Version None)
Quarter: 2006Q2

REPORT INFORMATION
  Report Type: 
  Country: None (occurrence: None)
  Receive Date: 20060421
  Receipt Date: 20060413
  Transmission Date: 20061013
  Serious: Yes (Hospitalization)
  Sender: FDA-Public Use
  Company Number: PHBS2006NL05446

PATIENT
  Age: 72 Year
  Sex: Male

DRUGS (4)
  1. EXELON [Suspect]
     Indication: DEMENTIA ALZHEIMER'S TYPE
     Dosage: 4.5 MG, BID
     Route: 048
     Dates: start: 20020401, end: 20050620
  2. SELOKEEN [Concomitant]
     Dosage: 100 MG, QD
     Dates: start: 20030101, end: 20050620
  3. TAMBOCOR [Concomitant]
     Dosage: 100 MG, QD
     Dates: start: 20030101, end: 20050620
  4. ACENOCOUMAROL [Concomitant]
     Dates: start: 20030101

REACTIONS (1)
  - HICCUPS [None]
